FAERS Safety Report 13237582 (Version 1)
Quarter: 2017Q1

REPORT INFORMATION
  Report Type: Spontaneous
  Country: IT (occurrence: IT)
  Receive Date: 20170215
  Receipt Date: 20170215
  Transmission Date: 20170428
  Serious: Yes (Death)
  Sender: FDA-Public Use
  Company Number: PHHY2017IT019579

PATIENT
  Sex: Male

DRUGS (6)
  1. ACETYLSALICYLIC ACID [Suspect]
     Active Substance: ASPIRIN
     Indication: PLATELET AGGREGATION INHIBITION
     Route: 065
  2. LEVOSIMENDAN [Concomitant]
     Active Substance: LEVOSIMENDAN
     Indication: LEFT VENTRICULAR DYSFUNCTION
     Route: 065
  3. AGGRASTAT [Concomitant]
     Active Substance: TIROFIBAN HYDROCHLORIDE
     Indication: CARDIAC FUNCTION DISTURBANCE POSTOPERATIVE
     Route: 065
  4. BRILIQUE [Suspect]
     Active Substance: TICAGRELOR
     Indication: PLATELET AGGREGATION INHIBITION
     Route: 065
  5. HEPARIN [Concomitant]
     Active Substance: HEPARIN SODIUM
     Indication: PRODUCT USED FOR UNKNOWN INDICATION
     Route: 065
  6. KAOLIN [Concomitant]
     Active Substance: KAOLIN
     Indication: THROMBOELASTOGRAM
     Route: 065

REACTIONS (6)
  - Anal haemorrhage [Fatal]
  - Cardiac arrest [Fatal]
  - Anaemia [Fatal]
  - Haematochezia [Fatal]
  - Rectal cancer [Fatal]
  - Condition aggravated [Fatal]
